FAERS Safety Report 4611227-8 (Version None)
Quarter: 2005Q1

REPORT INFORMATION
  Report Type: 
  Country: None (occurrence: None)
  Receive Date: 20050317
  Receipt Date: 20050203
  Transmission Date: 20050727
  Serious: Yes (Life-Threatening, Hospitalization, Disabling, Other)
  Sender: FDA-Public Use
  Company Number: US-MERCK-0502USA00458

PATIENT
  Age: 59 Year
  Sex: Female
  Weight: 125 kg

DRUGS (2)
  1. VIOXX [Suspect]
     Indication: RHEUMATOID ARTHRITIS
     Route: 048
  2. GLUCOTROL [Concomitant]
     Route: 065

REACTIONS (24)
  - ARTHROPATHY [None]
  - CARDIAC MURMUR [None]
  - CARDIOMYOPATHY [None]
  - CHEST PAIN [None]
  - CHOLECYSTECTOMY [None]
  - DIABETES MELLITUS INADEQUATE CONTROL [None]
  - DYSPNOEA [None]
  - FALL [None]
  - FLANK PAIN [None]
  - GALLBLADDER DISORDER [None]
  - HYPERLIPIDAEMIA [None]
  - HYPERTENSION [None]
  - INJURY [None]
  - INTERVERTEBRAL DISC DISORDER [None]
  - INTERVERTEBRAL DISC OPERATION [None]
  - MUSCLE STRAIN [None]
  - MUSCULOSKELETAL DISORDER [None]
  - NIGHT SWEATS [None]
  - PAIN IN EXTREMITY [None]
  - PANCREATITIS [None]
  - RENAL FAILURE [None]
  - SKIN HYPERPIGMENTATION [None]
  - STAPHYLOCOCCAL INFECTION [None]
  - TOXIC SHOCK SYNDROME STREPTOCOCCAL [None]
